FAERS Safety Report 6881316-6 (Version None)
Quarter: 2010Q3

REPORT INFORMATION
  Report Type: 
  Country: None (occurrence: None)
  Receive Date: 20100728
  Receipt Date: 20100723
  Transmission Date: 20110219
  Serious: Yes (Other)
  Sender: FDA-Public Use
  Company Number: US-AMGEN-QUU426703

PATIENT
  Sex: Male

DRUGS (2)
  1. NPLATE [Suspect]
     Indication: THROMBOCYTOPENIA
     Dates: start: 20090212
  2. CORTICOSTEROIDS [Concomitant]
     Dates: start: 20081224

REACTIONS (3)
  - EMBOLISM ARTERIAL [None]
  - HAEMATOLOGICAL MALIGNANCY [None]
  - THROMBOSIS [None]
